FAERS Safety Report 19758456 (Version 1)
Quarter: 2021Q3

REPORT INFORMATION
  Report Type: Spontaneous
  Country: CZ (occurrence: CZ)
  Receive Date: 20210828
  Receipt Date: 20210828
  Transmission Date: 20211014
  Serious: Yes (Other)
  Sender: FDA-Public Use
  Company Number: NVSC2021CZ191379

PATIENT
  Age: 13 Month
  Sex: Male
  Weight: 8 kg

DRUGS (3)
  1. AVIBACTAM SODIUM. [Suspect]
     Active Substance: AVIBACTAM SODIUM
     Indication: ABDOMINAL INFECTION
     Dosage: UNK
     Route: 065
  2. VANCOMYCIN HYDROCHLORIDE. [Suspect]
     Active Substance: VANCOMYCIN HYDROCHLORIDE
     Indication: ABDOMINAL INFECTION
     Dosage: UNK
     Route: 065
  3. FLUCONAZOLE. [Suspect]
     Active Substance: FLUCONAZOLE
     Indication: ORAL CANDIDIASIS
     Dosage: UNK
     Route: 065

REACTIONS (2)
  - Small intestinal perforation [Recovered/Resolved]
  - Peritonitis [Recovered/Resolved]
